FAERS Safety Report 14917581 (Version 1)
Quarter: 2018Q2

REPORT INFORMATION
  Report Type: Spontaneous
  Country: US (occurrence: US)
  Receive Date: 20180521
  Receipt Date: 20180521
  Transmission Date: 20180711
  Serious: No
  Sender: FDA-Public Use
  Company Number: US-TEVA-798458ACC

PATIENT
  Sex: Female

DRUGS (1)
  1. NORETHINDRONE ACETATE. [Suspect]
     Active Substance: NORETHINDRONE ACETATE
     Indication: UTERINE HAEMORRHAGE
     Dates: start: 20170720

REACTIONS (6)
  - Rash erythematous [Unknown]
  - Back pain [Unknown]
  - Chromaturia [Unknown]
  - Hypersensitivity [Unknown]
  - Nausea [Unknown]
  - Urticaria [Unknown]

NARRATIVE: CASE EVENT DATE: 20170721
